FAERS Safety Report 17021979 (Version 2)
Quarter: 2022Q2

REPORT INFORMATION
  Report Type: Report from Study
  Country: US (occurrence: US)
  Receive Date: 20191112
  Receipt Date: 20220628
  Transmission Date: 20220721
  Serious: Yes (Other)
  Sender: FDA-Public Use
  Company Number: US-JAZZ-2019-US-013088

PATIENT
  Sex: Female

DRUGS (22)
  1. XYREM [Suspect]
     Active Substance: SODIUM OXYBATE
     Indication: Narcolepsy
     Dosage: 2 G, BID
     Route: 048
     Dates: start: 201908
  2. XYREM [Suspect]
     Active Substance: SODIUM OXYBATE
     Indication: Cataplexy
  3. ADDERALL [Concomitant]
     Active Substance: AMPHETAMINE ASPARTATE\AMPHETAMINE SULFATE\DEXTROAMPHETAMINE SACCHARATE\DEXTROAMPHETAMINE SULFATE
     Indication: Product used for unknown indication
     Dosage: TWO TIMES DAILY
     Dates: start: 201907
  4. ADDERALL [Concomitant]
     Active Substance: AMPHETAMINE ASPARTATE\AMPHETAMINE SULFATE\DEXTROAMPHETAMINE SACCHARATE\DEXTROAMPHETAMINE SULFATE
     Dosage: ONE AT AM AND ONE AT ABOUT NOON
     Dates: start: 20190828
  5. ADDERALL [Concomitant]
     Active Substance: AMPHETAMINE ASPARTATE\AMPHETAMINE SULFATE\DEXTROAMPHETAMINE SACCHARATE\DEXTROAMPHETAMINE SULFATE
     Dosage: 30 MILLIGRAM
     Dates: start: 20200602
  6. EFFEXOR [Concomitant]
     Active Substance: VENLAFAXINE HYDROCHLORIDE
     Indication: Narcolepsy
     Dosage: 75 MILLIGRAM, QD
     Dates: start: 20190731
  7. EFFEXOR [Concomitant]
     Active Substance: VENLAFAXINE HYDROCHLORIDE
     Indication: Cataplexy
     Dosage: 75 MILLIGRAM, QD
     Route: 048
     Dates: start: 20220103
  8. EFFEXOR [Concomitant]
     Active Substance: VENLAFAXINE HYDROCHLORIDE
     Dosage: 150 MILLIGRAM, QD
     Route: 048
     Dates: start: 20220103
  9. LORATADINE [Concomitant]
     Active Substance: LORATADINE
     Indication: Rhinitis allergic
     Dosage: 1 DOSAGE FORM, QD
     Dates: start: 20190731
  10. LORATADINE [Concomitant]
     Active Substance: LORATADINE
     Dosage: 1 TABLET DAILY
     Route: 048
     Dates: start: 20190530
  11. MIRALAX [Concomitant]
     Active Substance: POLYETHYLENE GLYCOL 3350
     Indication: Product used for unknown indication
     Dosage: 1 CAPFUL DAILY
     Dates: start: 20180612
  12. MIRALAX [Concomitant]
     Active Substance: POLYETHYLENE GLYCOL 3350
     Dosage: UNK, QD
     Dates: start: 20190731
  13. MODAFINIL [Concomitant]
     Active Substance: MODAFINIL
     Indication: Product used for unknown indication
     Dosage: 1 TABLET TWO TIMES DAILY
     Dates: start: 20190731
  14. XYZAL ALLERGY 24HR [Concomitant]
     Active Substance: LEVOCETIRIZINE DIHYDROCHLORIDE
     Indication: Product used for unknown indication
     Dosage: 1 TABLET DAILY
     Route: 048
     Dates: start: 20190424
  15. PROVIGIL [Concomitant]
     Active Substance: MODAFINIL
     Indication: Product used for unknown indication
     Dosage: UNK
     Dates: start: 20190731
  16. WAKIX [Concomitant]
     Active Substance: PITOLISANT HYDROCHLORIDE
     Indication: Product used for unknown indication
     Dosage: UNK
     Dates: start: 20200603
  17. SAXENDA [Concomitant]
     Active Substance: LIRAGLUTIDE
     Indication: Product used for unknown indication
     Dosage: 18MG/3ML, 2.4 MILLIGRAM, QD FOR ONE WEEK
     Route: 058
  18. SAXENDA [Concomitant]
     Active Substance: LIRAGLUTIDE
     Dosage: 3 MILLIGRAM, QD
  19. STRATTERA [Concomitant]
     Active Substance: ATOMOXETINE HYDROCHLORIDE
     Indication: Narcolepsy
     Dosage: 1 DOSAGE FORM, QD
     Dates: start: 20220204
  20. STRATTERA [Concomitant]
     Active Substance: ATOMOXETINE HYDROCHLORIDE
     Indication: Cataplexy
  21. VICTOZA [Concomitant]
     Active Substance: LIRAGLUTIDE
     Indication: Insulin resistance
     Dosage: 18 MG/3ML, 2.4 MILLIGRAM, QD FOR 1 WEEK
     Route: 058
     Dates: start: 20210908
  22. VICTOZA [Concomitant]
     Active Substance: LIRAGLUTIDE
     Dosage: 3 MILLIGRAM, QD
     Route: 058

REACTIONS (5)
  - Cataplexy [Not Recovered/Not Resolved]
  - Anger [Unknown]
  - Panic attack [Recovering/Resolving]
  - Hypnagogic hallucination [Not Recovered/Not Resolved]
  - Anxiety [Not Recovered/Not Resolved]

NARRATIVE: CASE EVENT DATE: 20190101
